FAERS Safety Report 14972932 (Version 1)
Quarter: 2018Q2

REPORT INFORMATION
  Report Type: Spontaneous
  Country: BE (occurrence: BE)
  Receive Date: 20180605
  Receipt Date: 20180605
  Transmission Date: 20180711
  Serious: Yes (Other)
  Sender: FDA-Public Use
  Company Number: BE-ABBVIE-18K-013-2373298-00

PATIENT
  Sex: Female

DRUGS (1)
  1. HUMIRA [Suspect]
     Active Substance: ADALIMUMAB
     Indication: CROHN^S DISEASE
     Route: 058
     Dates: start: 2016

REACTIONS (1)
  - Systemic lupus erythematosus [Unknown]
